FAERS Safety Report 24784568 (Version 1)
Quarter: 2024Q4

REPORT INFORMATION
  Report Type: Spontaneous
  Country: CN (occurrence: CN)
  Receive Date: 20241227
  Receipt Date: 20241227
  Transmission Date: 20250115
  Serious: Yes (Hospitalization, Disabling)
  Sender: EISAI
  Company Number: CN-Eisai-EC-2024-181058

PATIENT
  Age: 57 Year
  Sex: Female
  Weight: 58 kg

DRUGS (2)
  1. ERIBULIN [Suspect]
     Active Substance: ERIBULIN
     Indication: Breast cancer
     Route: 042
     Dates: start: 20241122
  2. PUCOTENLIMAB [Suspect]
     Active Substance: PUCOTENLIMAB
     Indication: Breast cancer
     Dosage: FREQUENCY UNKNOWN.
     Route: 042
     Dates: start: 20241122

REACTIONS (6)
  - Myelitis [Recovering/Resolving]
  - Urinary retention [Recovering/Resolving]
  - Abdominal distension [Recovering/Resolving]
  - Vomiting [Recovering/Resolving]
  - Abdominal pain [Recovering/Resolving]
  - Asthenia [Recovering/Resolving]

NARRATIVE: CASE EVENT DATE: 20241206
